FAERS Safety Report 17461599 (Version 4)
Quarter: 2020Q3

REPORT INFORMATION
  Report Type: Other
  Country: CA (occurrence: CA)
  Receive Date: 20200226
  Receipt Date: 20200812
  Transmission Date: 20201102
  Serious: Yes (Other)
  Sender: FDA-Public Use
  Company Number: CA-ROCHE-2387756

PATIENT
  Age: 24 Year
  Sex: Female

DRUGS (5)
  1. WELLBUTRIN [Concomitant]
     Active Substance: BUPROPION HYDROCHLORIDE
     Dosage: EVERY MORNING
  2. OXYBUTYNIN. [Concomitant]
     Active Substance: OXYBUTYNIN CHLORIDE
     Dosage: EVERY NIGHT
     Dates: start: 20200207
  3. OCREVUS [Suspect]
     Active Substance: OCRELIZUMAB
     Indication: RELAPSING-REMITTING MULTIPLE SCLEROSIS
     Dosage: 300 MG AT DAY 0 AND 14, THEN 600 MG EVERY 6 MONTH ;ONGOING: YES
     Route: 042
     Dates: start: 20190807
  4. OCREVUS [Suspect]
     Active Substance: OCRELIZUMAB
     Route: 042
     Dates: start: 20200210
  5. MELATONIN [Concomitant]
     Active Substance: MELATONIN
     Dosage: 20?30 MG DAYS 1 1?EVERY NIGHT

REACTIONS (14)
  - Cystitis [Not Recovered/Not Resolved]
  - Amnesia [Unknown]
  - Stress [Unknown]
  - Feeling hot [Unknown]
  - Acne [Unknown]
  - Infusion related reaction [Recovered/Resolved]
  - Stress [Recovered/Resolved]
  - Pain [Unknown]
  - Cough [Unknown]
  - Blood pressure decreased [Unknown]
  - Limb discomfort [Unknown]
  - Multiple sclerosis [Unknown]
  - Nausea [Unknown]
  - Sneezing [Unknown]

NARRATIVE: CASE EVENT DATE: 201912
